FAERS Safety Report 7141531-3 (Version None)
Quarter: 2010Q4

REPORT INFORMATION
  Report Type: 
  Country: None (occurrence: None)
  Receive Date: 20101126
  Receipt Date: 20101109
  Transmission Date: 20110411
  Serious: Yes (Other)
  Sender: FDA-Public Use
  Company Number: GER/UKI/10/0016612

PATIENT
  Age: 17 Year
  Sex: Female

DRUGS (2)
  1. FLUOXETINE [Suspect]
     Indication: ILL-DEFINED DISORDER
  2. CONCERTA [Suspect]
     Indication: ATTENTION DEFICIT/HYPERACTIVITY DISORDER
     Dosage: 27 MG, 1 IN 1 D, ORAL; 18 MG, 1 IN 1 D, ORAL
     Route: 048
     Dates: start: 20101005

REACTIONS (5)
  - AGGRESSION [None]
  - ANXIETY [None]
  - INTENTIONAL SELF-INJURY [None]
  - SUICIDAL IDEATION [None]
  - THERAPY REGIMEN CHANGED [None]
